FAERS Safety Report 4580617-4 (Version None)
Quarter: 2005Q1

REPORT INFORMATION
  Report Type: 
  Country: None (occurrence: None)
  Receive Date: 20050214
  Receipt Date: 20040426
  Transmission Date: 20050727
  Serious: No
  Sender: FDA-Public Use
  Company Number: US-GLAXOSMITHKLINE-A0508472A

PATIENT
  Age: 34 Year
  Sex: Female

DRUGS (10)
  1. LAMICTAL [Suspect]
     Indication: EPILEPSY
     Dosage: 25MG TWICE PER DAY
     Route: 048
     Dates: start: 20040420
  2. TEGRETOL [Concomitant]
  3. EFFEXOR XR [Concomitant]
  4. TRAZODONE [Concomitant]
  5. BENZTROPINE MESYLATE [Concomitant]
  6. VIOXX [Concomitant]
  7. ZOFRAN [Concomitant]
  8. KLONOPIN [Concomitant]
  9. AEROBID [Concomitant]
  10. ALBUTEROL [Concomitant]

REACTIONS (1)
  - RASH [None]
